FAERS Safety Report 12860938 (Version 1)
Quarter: 2016Q4

REPORT INFORMATION
  Report Type: Spontaneous
  Country: US (occurrence: US)
  Receive Date: 20161019
  Receipt Date: 20161019
  Transmission Date: 20170207
  Serious: No
  Sender: FDA-Public Use
  Company Number: US-APOTEX-2015AP014209

PATIENT
  Sex: Female

DRUGS (1)
  1. FLUTICASONE PROPIONATE. [Suspect]
     Active Substance: FLUTICASONE PROPIONATE
     Indication: SINUS HEADACHE
     Dosage: 2 SPRAYS PER NOSTRIL, ONCE DAILY
     Route: 065
     Dates: start: 20151008

REACTIONS (5)
  - Nasal discomfort [Not Recovered/Not Resolved]
  - Feeling abnormal [Unknown]
  - Dizziness [Unknown]
  - Balance disorder [Unknown]
  - Drug ineffective [Unknown]
